FAERS Safety Report 14992837 (Version 3)
Quarter: 2018Q3

REPORT INFORMATION
  Report Type: Spontaneous
  Country: US (occurrence: US)
  Receive Date: 20180609
  Receipt Date: 20180809
  Transmission Date: 20181010
  Serious: No
  Sender: FDA-Public Use
  Company Number: US-JNJFOC-20180529782

PATIENT
  Age: 75 Year
  Sex: Male
  Weight: 84.37 kg

DRUGS (11)
  1. DARZALEX [Suspect]
     Active Substance: DARATUMUMAB
     Indication: PLASMA CELL MYELOMA RECURRENT
     Route: 042
     Dates: start: 20180517
  2. XARELTO [Concomitant]
     Active Substance: RIVAROXABAN
     Dosage: WITH DINNER
     Route: 048
  3. DARZALEX [Suspect]
     Active Substance: DARATUMUMAB
     Indication: PLASMA CELL MYELOMA RECURRENT
     Dosage: WEEKLY X 8, BI?WEEKLY X 8, THEN MONTHLY
     Route: 042
     Dates: start: 20180508, end: 20180508
  4. ZOFRAN [Concomitant]
     Active Substance: ONDANSETRON HYDROCHLORIDE
     Indication: NAUSEA
     Dosage: (AS NEEDED) UP TO 30 DAYS
     Route: 048
  5. XARELTO [Concomitant]
     Active Substance: RIVAROXABAN
     Dosage: WITH DINNER.
     Route: 048
  6. REVLIMID [Concomitant]
     Active Substance: LENALIDOMIDE
     Indication: PLASMA CELL MYELOMA
     Dosage: X 21 DAYS
     Route: 048
     Dates: start: 20180425
  7. CHOLECALCIFEROL [Concomitant]
     Active Substance: CHOLECALCIFEROL
     Route: 048
  8. ZOFRAN [Concomitant]
     Active Substance: ONDANSETRON HYDROCHLORIDE
     Indication: VOMITING
     Dosage: (AS NEEDED) UP TO 30 DAYS
     Route: 048
  9. VALTREX [Concomitant]
     Active Substance: VALACYCLOVIR HYDROCHLORIDE
     Dosage: FOR 90 DAYS.
     Route: 048
  10. DECADRON [Concomitant]
     Active Substance: DEXAMETHASONE
     Dosage: (4 MG TABLETS) FOR SIX MONTHS
     Route: 048
  11. ZOCOR [Concomitant]
     Active Substance: SIMVASTATIN
     Route: 048

REACTIONS (13)
  - Infusion related reaction [Recovered/Resolved]
  - Cough [Recovered/Resolved]
  - Lacrimation increased [Recovered/Resolved]
  - Pyrexia [Recovered/Resolved]
  - Sneezing [Recovered/Resolved]
  - Chest discomfort [Recovered/Resolved]
  - Rash [Recovered/Resolved]
  - Inflammation [Recovered/Resolved]
  - Rhinorrhoea [Recovered/Resolved]
  - Flushing [Recovered/Resolved]
  - Chills [Recovered/Resolved]
  - Erythema [Recovered/Resolved]
  - Tachycardia [Unknown]

NARRATIVE: CASE EVENT DATE: 201805
